FAERS Safety Report 9889186 (Version 1)
Quarter: 2014Q1

REPORT INFORMATION
  Report Type: Spontaneous
  Country: US (occurrence: None)
  Receive Date: 20140207
  Receipt Date: 20140207
  Transmission Date: 20141002
  Serious: Yes (Hospitalization)
  Sender: FDA-Public Use
  Company Number: DSU-2014-00232

PATIENT
  Age: 73 Year
  Sex: Female
  Weight: 68.04 kg

DRUGS (2)
  1. WELCHOL [Suspect]
     Indication: HYPERCHOLESTEROLAEMIA
     Route: 048
  2. WELCHOL [Suspect]
     Route: 048

REACTIONS (5)
  - Hip arthroplasty [None]
  - Drug administration error [None]
  - Foreign body [None]
  - Influenza like illness [None]
  - Oropharyngeal pain [None]
